FAERS Safety Report 7405971 (Version 2)
Quarter: 2013Q2

REPORT INFORMATION
  Report Type: Spontaneous
  Country: US (occurrence: None)
  Receive Date: 20100525
  Receipt Date: 20130403
  Transmission Date: 20140414
  Serious: Yes (Death)
  Sender: FDA-Public Use
  Company Number: AUR-APL-2010-01276

PATIENT
  Age: 47 Year
  Sex: Female

DRUGS (10)
  1. FLUOXETINE [Suspect]
     Indication: PRODUCT USED FOR UNKNOWN INDICATION
  2. SERTRALINE HYDROCHLORIDE [Suspect]
  3. OXYMORPHONE HYDROCHLORIDE [Suspect]
  4. METHAMPHETAMINE HYDROCHLORIDE [Suspect]
  5. TRAZODONE HYDROCHLORIDE [Suspect]
  6. ETHANOL [Suspect]
  7. BUPROPION [Suspect]
  8. AMPHETAMINE SULFATE [Suspect]
  9. TRIMETHOPRIM [Suspect]
  10. CHLORPHENIRAMINE [Suspect]

REACTIONS (12)
  - Contusion [None]
  - Excoriation [None]
  - Alcohol poisoning [None]
  - Toxicity to various agents [None]
  - Accidental death [None]
  - Pulmonary congestion [None]
  - Muscle rigidity [None]
  - Lividity [None]
  - Ecchymosis [None]
  - Hepatic cirrhosis [None]
  - Drug screen positive [None]
  - Alcohol poisoning [None]
